FAERS Safety Report 5155013-1 (Version None)
Quarter: 2006Q4

REPORT INFORMATION
  Report Type: 
  Country: None (occurrence: None)
  Receive Date: 20061121
  Receipt Date: 20060823
  Transmission Date: 20070319
  Serious: Yes (Other)
  Sender: FDA-Public Use
  Company Number: PHNU2006DE02885

PATIENT
  Sex: Male
  Weight: 90 kg

DRUGS (1)
  1. ZOMETA [Suspect]
     Indication: METASTASES TO BONE
     Dosage: 4 MG, QMO
     Route: 042
     Dates: start: 20020802, end: 20061025

REACTIONS (3)
  - JAW DISORDER [None]
  - OSTEONECROSIS [None]
  - TOOTH EXTRACTION [None]
